FAERS Safety Report 6128030-2 (Version None)
Quarter: 2009Q1

REPORT INFORMATION
  Report Type: 
  Country: None (occurrence: None)
  Receive Date: 20090323
  Receipt Date: 20090311
  Transmission Date: 20090719
  Serious: Yes (Hospitalization, Other)
  Sender: FDA-Public Use
  Company Number: US-MERCK-0708USA04098

PATIENT
  Age: 62 Year
  Sex: Female
  Weight: 69 kg

DRUGS (9)
  1. FOSAMAX [Suspect]
     Indication: OSTEOPENIA
     Route: 048
     Dates: start: 20000501, end: 20060524
  2. FOSAMAX [Suspect]
     Indication: OSTEOPOROSIS
     Route: 048
     Dates: start: 20000501, end: 20060524
  3. [THERAPY UNSPECIFIED] [Concomitant]
     Indication: HYPERTENSION
     Route: 065
     Dates: start: 19960101
  4. LASIX [Concomitant]
     Indication: FLUID RETENTION
     Route: 065
     Dates: start: 19740101
  5. ALBUTEROL [Concomitant]
     Indication: ASTHMA
     Route: 065
     Dates: start: 19900101
  6. CELEXA [Concomitant]
     Indication: DEPRESSION
     Route: 065
     Dates: start: 19990101
  7. ZANTAC [Concomitant]
     Route: 065
     Dates: start: 19960101
  8. SINGULAIR [Concomitant]
     Route: 065
     Dates: start: 19990101
  9. IMITREX (SUMATRIPTAN) [Concomitant]
     Route: 065
     Dates: start: 19900101

REACTIONS (42)
  - ADVERSE DRUG REACTION [None]
  - ANXIETY [None]
  - APPETITE DISORDER [None]
  - BACK PAIN [None]
  - BARRETT'S OESOPHAGUS [None]
  - BLADDER DISORDER [None]
  - BLOOD CHOLESTEROL INCREASED [None]
  - BONE LESION [None]
  - CATARACT [None]
  - CEREBRAL DISORDER [None]
  - CHEST PAIN [None]
  - CHRONIC SINUSITIS [None]
  - CONJUNCTIVAL DISORDER [None]
  - CONTUSION [None]
  - COUGH [None]
  - CYSTOCELE [None]
  - DEMENTIA ALZHEIMER'S TYPE [None]
  - DEPRESSION [None]
  - DYSPEPSIA [None]
  - ECCHYMOSIS [None]
  - EPIGASTRIC DISCOMFORT [None]
  - FALL [None]
  - FATIGUE [None]
  - GASTRIC ULCER [None]
  - GASTRITIS [None]
  - HAEMATURIA [None]
  - HERPES ZOSTER [None]
  - HYPERLIPIDAEMIA [None]
  - HYPERSENSITIVITY [None]
  - HYPERTENSION [None]
  - ILIOTIBIAL BAND SYNDROME [None]
  - MIGRAINE [None]
  - OSTEOMYELITIS [None]
  - OSTEONECROSIS [None]
  - PALPITATIONS [None]
  - PLATELET COUNT DECREASED [None]
  - RHINITIS ALLERGIC [None]
  - ROTATOR CUFF SYNDROME [None]
  - STRESS [None]
  - THROMBOPHLEBITIS SUPERFICIAL [None]
  - TOOTH ABSCESS [None]
  - TOOTH INFECTION [None]
